FAERS Safety Report 8916879 (Version 2)
Quarter: 2012Q4

REPORT INFORMATION
  Report Type: 
  Country: JP (occurrence: JP)
  Receive Date: 20121120
  Receipt Date: 20121210
  Transmission Date: 20130627
  Serious: Yes (Death, Hospitalization)
  Sender: FDA-Public Use
  Company Number: JP-AMGEN-JPNSP2012073517

PATIENT
  Age: 78 Year
  Sex: Male
  Weight: 48 kg

DRUGS (6)
  1. VECTIBIX [Suspect]
     Indication: LARGE INTESTINE CARCINOMA
     Dosage: 280 mg, q3wk
     Route: 041
     Dates: start: 20120509, end: 20121017
  2. IRINOTECAN HYDROCHLORIDE [Suspect]
     Indication: LARGE INTESTINE CARCINOMA
     Dosage: 200 mg, q3wk
     Route: 041
     Dates: start: 20120328, end: 20121017
  3. 5-FU [Suspect]
     Indication: LARGE INTESTINE CARCINOMA
     Dosage: 3400 mg, q3wk
     Route: 040
     Dates: start: 20120328, end: 20121017
  4. CAPECITABINE [Suspect]
     Indication: LARGE INTESTINE CARCINOMA
     Dosage: UNK UNK, UNK
     Route: 048
  5. LEVOFOLINATE [Suspect]
     Indication: LARGE INTESTINE CARCINOMA
     Dosage: 280 mg, q3wk
     Route: 041
     Dates: start: 20120328, end: 20121017
  6. ELPLAT [Concomitant]
     Indication: LARGE INTESTINE CARCINOMA
     Dosage: 125 mg, q2wk
     Route: 041
     Dates: start: 20120328, end: 20120328

REACTIONS (7)
  - Sepsis [Fatal]
  - Febrile neutropenia [Fatal]
  - Diarrhoea [Unknown]
  - Dehydration [Unknown]
  - Bone marrow failure [None]
  - Circulatory collapse [None]
  - Respiratory failure [None]
